FAERS Safety Report 11237593 (Version 1)
Quarter: 2015Q3

REPORT INFORMATION
  Report Type: Spontaneous
  Country: US (occurrence: US)
  Receive Date: 20150703
  Receipt Date: 20150703
  Transmission Date: 20151125
  Serious: Yes (Other)
  Sender: FDA-Public Use
  Company Number: US-JNJFOC-20150622679

PATIENT
  Sex: Male

DRUGS (1)
  1. INVEGA [Suspect]
     Active Substance: PALIPERIDONE
     Indication: SLEEP DISORDER THERAPY
     Route: 048
     Dates: start: 2015

REACTIONS (6)
  - Dizziness [Unknown]
  - Fatigue [Unknown]
  - Hypersensitivity [Unknown]
  - Product use issue [Unknown]
  - Anxiety [Not Recovered/Not Resolved]
  - Facial bones fracture [Unknown]
